FAERS Safety Report 4457529-X (Version None)
Quarter: 2004Q3

REPORT INFORMATION
  Report Type: 
  Country: None (occurrence: None)
  Receive Date: 20040922
  Receipt Date: 20040901
  Transmission Date: 20050211
  Serious: Yes (Hospitalization, Other)
  Sender: FDA-Public Use
  Company Number: USA040977071

PATIENT
  Age: 42 Year
  Sex: Male

DRUGS (13)
  1. ALIMTA [Suspect]
     Indication: MESOTHELIOMA
     Dosage: 500 MG/M2 OTHER
     Route: 050
     Dates: start: 20040728
  2. GEMZAR [Suspect]
     Indication: MESOTHELIOMA
     Dates: start: 20030601, end: 20030901
  3. CISPLATIN [Concomitant]
  4. VITAMIN B-12 [Concomitant]
  5. FOLIC ACID [Concomitant]
  6. DECADRON [Concomitant]
  7. EXTRA STRENGTH TYLENOL [Concomitant]
  8. COLACE (DOCUSATE SODIUM) [Concomitant]
  9. SPIRIVA [Concomitant]
  10. ADVAIR DISKUS 100/50 [Concomitant]
  11. FLOVENT [Concomitant]
  12. ALBUTEROL [Concomitant]
  13. PROTONIX [Concomitant]

REACTIONS (8)
  - ASTHMA [None]
  - DISEASE RECURRENCE [None]
  - DYSPNOEA [None]
  - MESOTHELIOMA [None]
  - PYREXIA [None]
  - RASH [None]
  - TACHYPNOEA [None]
  - VOMITING [None]
